FAERS Safety Report 26191952 (Version 1)
Quarter: 2025Q4

REPORT INFORMATION
  Report Type: Spontaneous
  Country: CA (occurrence: CA)
  Receive Date: 20251223
  Receipt Date: 20251223
  Transmission Date: 20260118
  Serious: Yes (Other)
  Sender: JOHNSON AND JOHNSON
  Company Number: CA-JNJFOC-20251229524

PATIENT

DRUGS (6)
  1. BEDAQUILINE [Suspect]
     Active Substance: BEDAQUILINE
     Indication: Meningitis tuberculous
     Route: 048
  2. MEROPENEM [Suspect]
     Active Substance: MEROPENEM
     Indication: Meningitis tuberculous
  3. AMOXICILLIN\CLAVULANATE POTASSIUM [Suspect]
     Active Substance: AMOXICILLIN\CLAVULANATE POTASSIUM
     Indication: Meningitis tuberculous
  4. CYCLOSERINE [Suspect]
     Active Substance: CYCLOSERINE
     Indication: Meningitis tuberculous
  5. LINEZOLID [Suspect]
     Active Substance: LINEZOLID
     Indication: Meningitis tuberculous
  6. CLOFAZIMINE [Suspect]
     Active Substance: CLOFAZIMINE
     Indication: Meningitis tuberculous

REACTIONS (3)
  - Neutropenia [Unknown]
  - Neuropathy peripheral [Unknown]
  - Ototoxicity [Unknown]
